FAERS Safety Report 26012478 (Version 1)
Quarter: 2025Q4

REPORT INFORMATION
  Report Type: Spontaneous
  Country: EU (occurrence: EU)
  Receive Date: 20251107
  Receipt Date: 20251107
  Transmission Date: 20260118
  Serious: Yes (Hospitalization)
  Sender: TEVA
  Company Number: None

PATIENT
  Age: 60 Year
  Sex: Female
  Weight: 51 kg

DRUGS (3)
  1. LAMOTRIGINE [Suspect]
     Active Substance: LAMOTRIGINE
     Indication: Poisoning deliberate
     Dosage: TIME INTERVAL: TOTAL: 100 MG X 30 TABLETS
     Route: 048
     Dates: start: 20250930, end: 20250930
  2. LORMETAZEPAM [Suspect]
     Active Substance: LORMETAZEPAM
     Indication: Poisoning deliberate
     Dosage: TIME INTERVAL: TOTAL: 2 MG X 15 TABLETS
     Route: 048
     Dates: start: 20250930, end: 20250930
  3. LEVOMEPROMAZINE [Suspect]
     Active Substance: LEVOMEPROMAZINE
     Indication: Poisoning deliberate
     Dosage: TIME INTERVAL: TOTAL: FILM-COATED SCORED TABLET
     Route: 048
     Dates: start: 20250930, end: 20250930

REACTIONS (3)
  - Poisoning deliberate [Recovered/Resolved]
  - Altered state of consciousness [Recovered/Resolved]
  - Electrocardiogram QT prolonged [Recovered/Resolved]

NARRATIVE: CASE EVENT DATE: 20250930
